FAERS Safety Report 22006220 (Version 1)
Quarter: 2023Q1

REPORT INFORMATION
  Report Type: Spontaneous
  Country: SE (occurrence: SE)
  Receive Date: 20230217
  Receipt Date: 20230217
  Transmission Date: 20230418
  Serious: Yes (Other)
  Sender: FDA-Public Use
  Company Number: None

PATIENT
  Age: 49 Year
  Sex: Female
  Weight: 98 kg

DRUGS (9)
  1. COSENTYX [Suspect]
     Active Substance: SECUKINUMAB
     Indication: Ankylosing spondylitis
     Dosage: UNK
     Route: 065
  2. COSENTYX [Suspect]
     Active Substance: SECUKINUMAB
     Indication: Axial spondyloarthritis
     Dosage: 150 MG, QW (150 MG 1 DOSE PER WEEK FOR 5 YEARS THEN 1 EVERY 4TH WEEK)
     Route: 058
     Dates: start: 20211112, end: 20211117
  3. OMEPRAZOL SANDOZ [Concomitant]
     Indication: Product used for unknown indication
     Dosage: UNK UNK, QD (1 TILL 2 TAB PER DAG)
     Route: 048
     Dates: start: 20180101
  4. BUDESONIDE\FORMOTEROL [Concomitant]
     Active Substance: BUDESONIDE\FORMOTEROL
     Indication: Product used for unknown indication
     Dosage: 4 DOSAGE FORM, QD (2 DOSER MORGON OCH KVALL) (320 MICROGRAMS/9 MICROGRAMS/DOSE)
     Dates: start: 20160101
  5. MONTELUKAST KRKA [Concomitant]
     Indication: Product used for unknown indication
     Dosage: 10 MG, QD (1 TAB PER DAG)
     Route: 048
     Dates: start: 20210101
  6. PREDNISOLONE [Concomitant]
     Active Substance: PREDNISOLONE
     Indication: Product used for unknown indication
     Dosage: 30 MG, QD (30 MG PER DAG)
     Route: 048
     Dates: start: 20210215
  7. CANDESARSTAD [Concomitant]
     Indication: Product used for unknown indication
     Dosage: 16 MG, QD (1 TAB PER DAG)
     Route: 048
     Dates: start: 20180101
  8. PROGYNON [Concomitant]
     Indication: Product used for unknown indication
     Dosage: 2 MG, QD (1 TAB PER DAG)
     Route: 048
     Dates: start: 20210604
  9. NORMORIX MITE [Concomitant]
     Active Substance: AMILORIDE HYDROCHLORIDE\HYDROCHLOROTHIAZIDE
     Indication: Product used for unknown indication
     Dosage: 1 DOSAGE FORM, QD (1 TAB PER DAG)
     Route: 048
     Dates: start: 20190101

REACTIONS (11)
  - Abdominal distension [Recovered/Resolved]
  - Tinea pedis [Recovered/Resolved]
  - Gastrointestinal pain [Recovered/Resolved]
  - Pruritus [Recovered/Resolved]
  - Pain [Recovered/Resolved]
  - Erythema [Recovered/Resolved]
  - Onychomycosis [Recovered/Resolved]
  - Intestinal haemorrhage [Recovered/Resolved]
  - Cough [Unknown]
  - Oral fungal infection [Recovering/Resolving]
  - Diarrhoea [Recovered/Resolved]

NARRATIVE: CASE EVENT DATE: 20210101
